FAERS Safety Report 8974203 (Version 1)
Quarter: 2012Q4

REPORT INFORMATION
  Report Type: Spontaneous
  Country: US (occurrence: None)
  Receive Date: 20121214
  Receipt Date: 20121214
  Transmission Date: 20130627
  Serious: Yes (Hospitalization)
  Sender: FDA-Public Use
  Company Number: 1511463

PATIENT
  Age: 59 Year
  Sex: Female
  Weight: 66.82 kg

DRUGS (2)
  1. PENTOSTATIN [Suspect]
     Indication: CLL
     Dosage: Unknown,    Unknown,
UNKNOWN,  Intravenous
     Route: 042
     Dates: start: 20120221, end: 20120317
  2. RITUXAN [Suspect]
     Indication: CLL
     Dosage: Unknown,     Unknown
UNKNOWN,   Intravenous
     Route: 042
     Dates: start: 20120221, end: 20120317

REACTIONS (10)
  - Dyspnoea [None]
  - Fatigue [None]
  - Malnutrition [None]
  - Hyponatraemia [None]
  - Pyrexia [None]
  - Pericardial effusion [None]
  - Anaemia [None]
  - Generalised oedema [None]
  - Hepatic lesion [None]
  - Hepatic function abnormal [None]
